FAERS Safety Report 11716100 (Version 5)
Quarter: 2017Q3

REPORT INFORMATION
  Report Type: Report from Study
  Country: FR (occurrence: FR)
  Receive Date: 20151109
  Receipt Date: 20170918
  Transmission Date: 20171127
  Serious: Yes (Other)
  Sender: FDA-Public Use
  Company Number: FR-GILEAD-2015-0172037

PATIENT

DRUGS (4)
  1. SOFOSBUVIR [Suspect]
     Active Substance: SOFOSBUVIR
     Indication: HEPATITIS C
     Dosage: UNK
     Route: 065
  2. RILPIVIRINE [Concomitant]
     Active Substance: RILPIVIRINE
  3. RALTEGRAVIR. [Concomitant]
     Active Substance: RALTEGRAVIR
  4. DACLATASVIR. [Suspect]
     Active Substance: DACLATASVIR
     Indication: HEPATITIS C
     Dosage: UNK
     Route: 065

REACTIONS (3)
  - Viral mutation identified [Not Recovered/Not Resolved]
  - Hepatitis C [Unknown]
  - Drug ineffective [Unknown]
